FAERS Safety Report 8008326-X (Version None)
Quarter: 2011Q4

REPORT INFORMATION
  Report Type: 
  Country: None (occurrence: None)
  Receive Date: 20111227
  Receipt Date: 20111216
  Transmission Date: 20120403
  Serious: Yes (Hospitalization, Other)
  Sender: FDA-Public Use
  Company Number: AU-ROCHE-GNE323745

PATIENT
  Sex: Female

DRUGS (2)
  1. LUCENTIS [Suspect]
     Dosage: 0.5 ML, UNKNOWN
     Route: 050
     Dates: start: 20110701
  2. LUCENTIS [Suspect]
     Indication: AGE-RELATED MACULAR DEGENERATION
     Dosage: 0.5 ML, UNKNOWN
     Route: 050
     Dates: start: 20090301

REACTIONS (2)
  - AORTIC VALVE DISEASE [None]
  - DISEASE PROGRESSION [None]
